FAERS Safety Report 6492608-7 (Version None)
Quarter: 2009Q4

REPORT INFORMATION
  Report Type: 
  Country: None (occurrence: None)
  Receive Date: 20091209
  Receipt Date: 20091127
  Transmission Date: 20100525
  Serious: Yes (Other)
  Sender: FDA-Public Use
  Company Number: ADR52102009

PATIENT
  Age: 53 Year
  Sex: Female

DRUGS (3)
  1. SERTRALINE HCL [Suspect]
     Indication: DEPRESSION
     Dosage: 50 MG - 100 MG DAILY, ORAL
     Route: 048
  2. AYURVEDIC TREATMENT [Concomitant]
  3. DIAZEPAM [Concomitant]

REACTIONS (6)
  - DEPRESSION [None]
  - DRUG INTERACTION [None]
  - INSOMNIA [None]
  - PHYTOTHERAPY [None]
  - SUICIDAL IDEATION [None]
  - SUICIDE ATTEMPT [None]
